FAERS Safety Report 6625235-9 (Version None)
Quarter: 2010Q1

REPORT INFORMATION
  Report Type: 
  Country: None (occurrence: None)
  Receive Date: 20100310
  Receipt Date: 20090911
  Transmission Date: 20100710
  Serious: No
  Sender: FDA-Public Use
  Company Number: US-BIOGENIDEC-2009BI029004

PATIENT
  Sex: Male

DRUGS (1)
  1. AVONEX [Suspect]
     Indication: MULTIPLE SCLEROSIS
     Route: 030

REACTIONS (5)
  - DEPRESSION [None]
  - FATIGUE [None]
  - HAIR GROWTH ABNORMAL [None]
  - NAIL GROWTH ABNORMAL [None]
  - PARAESTHESIA [None]
